FAERS Safety Report 25753983 (Version 2)
Quarter: 2025Q4

REPORT INFORMATION
  Report Type: Spontaneous
  Country: CN (occurrence: CN)
  Receive Date: 20250903
  Receipt Date: 20251014
  Transmission Date: 20260117
  Serious: Yes (Other)
  Sender: BEIGENE
  Company Number: CN-ROCHE-10000353593

PATIENT
  Age: 48 Year
  Weight: 58 kg

DRUGS (47)
  1. BRUKINSA [Suspect]
     Active Substance: ZANUBRUTINIB
     Indication: Diffuse large B-cell lymphoma
     Dosage: UNK
  2. VINCRISTINE [Suspect]
     Active Substance: VINCRISTINE
     Indication: Diffuse large B-cell lymphoma
     Dosage: UNK
  3. POLATUZUMAB VEDOTIN [Suspect]
     Active Substance: POLATUZUMAB VEDOTIN
     Indication: Diffuse large B-cell lymphoma
     Dosage: UNK
  4. ETOPOSIDE [Suspect]
     Active Substance: ETOPOSIDE
     Indication: Diffuse large B-cell lymphoma
     Dosage: UNK
  5. METHYLPREDNISOLONE [Suspect]
     Active Substance: METHYLPREDNISOLONE
     Indication: Diffuse large B-cell lymphoma
  6. DEXAMETHASONE [Suspect]
     Active Substance: DEXAMETHASONE
     Indication: Diffuse large B-cell lymphoma
     Dosage: UNK
  7. EPIRUBICIN HYDROCHLORIDE [Suspect]
     Active Substance: EPIRUBICIN HYDROCHLORIDE
     Indication: Diffuse large B-cell lymphoma
     Dosage: UNK
  8. CYCLOPHOSPHAMIDE [Suspect]
     Active Substance: CYCLOPHOSPHAMIDE
     Indication: Diffuse large B-cell lymphoma
     Dosage: UNK
  9. RITUXIMAB [Suspect]
     Active Substance: RITUXIMAB
     Indication: Diffuse large B-cell lymphoma
     Dosage: UNK
  10. LEVOFLOXACIN [Concomitant]
     Active Substance: LEVOFLOXACIN
  11. ROXITHROMYCIN [Concomitant]
     Active Substance: ROXITHROMYCIN
  12. CYTARABINE HYDROCHLORIDE [Concomitant]
     Active Substance: CYTARABINE HYDROCHLORIDE
  13. ONDANSETRON HYDROCHLORIDE [Concomitant]
     Active Substance: ONDANSETRON HYDROCHLORIDE
  14. AVATROMBOPAG [Concomitant]
     Active Substance: AVATROMBOPAG
  15. LEUCOGEN [Concomitant]
     Active Substance: LEUCOGEN
  16. ACETYLCYSTEINE [Concomitant]
     Active Substance: ACETYLCYSTEINE
  17. METRONIDAZOLE [Concomitant]
     Active Substance: METRONIDAZOLE
  18. FLUCONAZOLE [Concomitant]
     Active Substance: FLUCONAZOLE
  19. ACYCLOVIR [Concomitant]
     Active Substance: ACYCLOVIR
  20. SUCRALFATE [Concomitant]
     Active Substance: SUCRALFATE
  21. INSULIN HUMAN [Concomitant]
     Active Substance: INSULIN HUMAN
  22. OMEPRAZOLE [Concomitant]
     Active Substance: OMEPRAZOLE
  23. SULFAMETHOXAZOLE [Concomitant]
     Active Substance: SULFAMETHOXAZOLE
  24. OCTREOTIDE ACETATE [Concomitant]
     Active Substance: OCTREOTIDE ACETATE
  25. IBUPROFEN [Concomitant]
     Active Substance: IBUPROFEN
  26. LOPERAMIDE HYDROCHLORIDE [Concomitant]
     Active Substance: LOPERAMIDE HYDROCHLORIDE
  27. FUROSEMIDE [Concomitant]
     Active Substance: FUROSEMIDE
  28. ALPROSTADIL [Concomitant]
     Active Substance: ALPROSTADIL
  29. BATROXOBIN [Concomitant]
     Active Substance: BATROXOBIN
  30. SEMUSTINE [Concomitant]
     Active Substance: SEMUSTINE
  31. TORSEMIDE [Concomitant]
     Active Substance: TORSEMIDE
  32. BERBERINE [Concomitant]
     Active Substance: BERBERINE
     Dosage: UNK
  33. POTASSIUM CHLORIDE [Concomitant]
     Active Substance: POTASSIUM CHLORIDE
  34. MONTMORILLONITE [Concomitant]
     Active Substance: MONTMORILLONITE
  35. AMINOPHYLLINE [Concomitant]
     Active Substance: AMINOPHYLLINE
  36. CHLORPHENIRAMINE MALEATE [Concomitant]
     Active Substance: CHLORPHENIRAMINE MALEATE
  37. METHOXYPHENAMINE HYDROCHLORIDE [Concomitant]
     Active Substance: METHOXYPHENAMINE HYDROCHLORIDE
  38. NOSCAPINE [Concomitant]
     Active Substance: NOSCAPINE
  39. MAGNESIUM ISOGLYCYRRHIZINATE [Concomitant]
     Active Substance: MAGNESIUM ISOGLYCYRRHIZINATE
  40. MEROPENEM [Concomitant]
     Active Substance: MEROPENEM
     Dosage: UNK
  41. ENTECAVIR [Concomitant]
     Active Substance: ENTECAVIR
  42. DEXAMETHASONE SODIUM PHOSPHATE [Concomitant]
     Active Substance: DEXAMETHASONE SODIUM PHOSPHATE
  43. CASPOFUNGIN ACETATE [Concomitant]
     Active Substance: CASPOFUNGIN ACETATE
  44. ESOMEPRAZOLE SODIUM [Concomitant]
     Active Substance: ESOMEPRAZOLE SODIUM
  45. CALCIUM CARBONATE\VITAMIN D [Concomitant]
     Active Substance: CALCIUM CARBONATE\VITAMIN D
  46. PROMETHAZINE HYDROCHLORIDE [Concomitant]
     Active Substance: PROMETHAZINE HYDROCHLORIDE
  47. CETIRIZINE HYDROCHLORIDE [Concomitant]
     Active Substance: CETIRIZINE HYDROCHLORIDE

REACTIONS (2)
  - Myelosuppression [Unknown]
  - Off label use [Unknown]
